FAERS Safety Report 8559171-8 (Version None)
Quarter: 2012Q3

REPORT INFORMATION
  Report Type: 
  Country: None (occurrence: None)
  Receive Date: 20120802
  Receipt Date: 20120727
  Transmission Date: 20120928
  Serious: Yes (Other)
  Sender: FDA-Public Use
  Company Number: GB-MSD-1207GBR012288

PATIENT

DRUGS (6)
  1. FOSAMAX [Suspect]
     Dosage: 75 MG, QW
     Dates: start: 20050101
  2. ATENOLOL [Concomitant]
     Indication: HYPERTENSION
     Dosage: 50 MG, UNK
  3. OMEPRAZOLE [Concomitant]
  4. ASPIRIN [Concomitant]
     Indication: THROMBOSIS PROPHYLAXIS
     Dosage: 75 MG, UNK
  5. PARACETAMOL TABLETS BP [Concomitant]
  6. VOLTAREN [Concomitant]

REACTIONS (1)
  - HIP FRACTURE [None]
